FAERS Safety Report 8957754 (Version 1)
Quarter: 2012Q4

REPORT INFORMATION
  Report Type: 
  Country: US (occurrence: US)
  Receive Date: 20121211
  Receipt Date: 20121211
  Transmission Date: 20130627
  Serious: Yes (Hospitalization)
  Sender: FDA-Public Use
  Company Number: US-FRI-1000040838

PATIENT
  Age: 48 Year
  Sex: Male
  Weight: 79.7 kg

DRUGS (2)
  1. TEFLARO [Suspect]
     Indication: ENDOCARDITIS
     Dosage: 1800 mg
     Route: 042
     Dates: start: 20120724, end: 20120828
  2. TEFLARO [Suspect]
     Indication: EMPHYSEMA

REACTIONS (3)
  - Purpura [Recovered/Resolved]
  - Rash erythematous [Unknown]
  - Oedema peripheral [Unknown]
